FAERS Safety Report 21133680 (Version 1)
Quarter: 2022Q3

REPORT INFORMATION
  Report Type: Spontaneous
  Country: US (occurrence: None)
  Receive Date: 20220726
  Receipt Date: 20220726
  Transmission Date: 20221027
  Serious: No
  Sender: FDA-Public Use
  Company Number: None

PATIENT
  Age: 51 Year
  Sex: Female
  Weight: 58.5 kg

DRUGS (8)
  1. PAXLOVID [Suspect]
     Active Substance: NIRMATRELVIR\RITONAVIR
     Indication: COVID-19
     Dosage: FREQUENCY : TWICE A DAY;?
     Route: 048
     Dates: start: 20220719, end: 20220724
  2. Fish oil (from anchovies + sardines) [Concomitant]
  3. adrenal + parotid (both bocine) [Concomitant]
  4. ^myomin^ (astragalus membranaceus, curcuma zedoaria, cyperus rotundus) [Concomitant]
  5. Vit D/K [Concomitant]
  6. IODINE [Concomitant]
     Active Substance: IODINE
  7. MAGNESIUM [Concomitant]
     Active Substance: MAGNESIUM
  8. Turkeytail Mushrooms [Concomitant]

REACTIONS (3)
  - Rebound effect [None]
  - Disease recurrence [None]
  - COVID-19 [None]

NARRATIVE: CASE EVENT DATE: 20220725
